FAERS Safety Report 7977573-5 (Version None)
Quarter: 2011Q4

REPORT INFORMATION
  Report Type: 
  Country: None (occurrence: None)
  Receive Date: 20111214
  Receipt Date: 20111123
  Transmission Date: 20120403
  Serious: No
  Sender: FDA-Public Use
  Company Number: US-AMGEN-USASP2011049317

PATIENT
  Age: 62 Year
  Sex: Female

DRUGS (3)
  1. ENBREL [Suspect]
     Indication: RHEUMATOID ARTHRITIS
     Dosage: 50 MG, QWK
     Dates: start: 20070503, end: 20100601
  2. METHOTREXATE [Concomitant]
     Indication: RHEUMATOID ARTHRITIS
     Dosage: UNK
  3. PREDNISONE TAB [Concomitant]
     Indication: RHEUMATOID ARTHRITIS
     Dosage: UNK

REACTIONS (2)
  - POLYMYALGIA RHEUMATICA [None]
  - MUSCULOSKELETAL STIFFNESS [None]
